FAERS Safety Report 6874726-4 (Version None)
Quarter: 2010Q3

REPORT INFORMATION
  Report Type: 
  Country: None (occurrence: None)
  Receive Date: 20100723
  Receipt Date: 20100714
  Transmission Date: 20110219
  Serious: Yes (Other)
  Sender: FDA-Public Use
  Company Number: 640440

PATIENT
  Age: 45 Year
  Sex: Male
  Weight: 152 kg

DRUGS (9)
  1. CYTARABINE [Suspect]
     Indication: PRODUCT USED FOR UNKNOWN INDICATION
     Dosage: 5043MG, DAILY, INTRAVENOUS
     Route: 042
  2. FLUDARABINE PHOSPHATE [Concomitant]
  3. DEXAMETHASONE [Concomitant]
  4. ONDANSETRON [Concomitant]
  5. LIDOCAINE [Concomitant]
  6. ACETAMINOPHEN W/ CODEINE [Concomitant]
  7. FLUCONAZOLE [Concomitant]
  8. NYSTATIN [Concomitant]
  9. ACYCLOVIR [Concomitant]

REACTIONS (4)
  - BURNING SENSATION [None]
  - HYPERSENSITIVITY [None]
  - PRURITUS [None]
  - RASH GENERALISED [None]
